FAERS Safety Report 24380075 (Version 3)
Quarter: 2024Q4

REPORT INFORMATION
  Report Type: Report from Study
  Country: US (occurrence: US)
  Receive Date: 20240930
  Receipt Date: 20241020
  Transmission Date: 20250115
  Serious: Yes (Other)
  Sender: UCB
  Company Number: US-UCBSA-2024048696

PATIENT
  Age: 16 Year
  Sex: Male
  Weight: 62 kg

DRUGS (1)
  1. FINTEPLA [Suspect]
     Active Substance: FENFLURAMINE
     Indication: Product used for unknown indication
     Dosage: UNK

REACTIONS (1)
  - Aortic valve incompetence [Unknown]

NARRATIVE: CASE EVENT DATE: 20240605
